FAERS Safety Report 9377155 (Version 2)
Quarter: 2013Q3

REPORT INFORMATION
  Report Type: Spontaneous
  Country: US (occurrence: US)
  Receive Date: 20130701
  Receipt Date: 20130701
  Transmission Date: 20140515
  Serious: Yes (Other)
  Sender: FDA-Public Use
  Company Number: US-RB-055452-13

PATIENT
  Age: 15 Year
  Sex: Male

DRUGS (3)
  1. DELSYM ADULT ORANGE LIQUID [Suspect]
     Indication: INTENTIONAL DRUG MISUSE
     Dosage: INGESTED 1 BOTTLE OF PRODUCT WITHIN THE PAST 3 HOURS
     Route: 048
     Dates: start: 20130623
  2. LEXAPRO [Concomitant]
     Indication: PRODUCT USED FOR UNKNOWN INDICATION
  3. CLONAZEPAM [Concomitant]
     Indication: PRODUCT USED FOR UNKNOWN INDICATION

REACTIONS (4)
  - Intentional drug misuse [Recovered/Resolved]
  - Lethargy [Recovered/Resolved]
  - Intentional overdose [Recovered/Resolved]
  - Abnormal behaviour [Recovered/Resolved]
